FAERS Safety Report 20505364 (Version 2)
Quarter: 2022Q1

REPORT INFORMATION
  Report Type: Spontaneous
  Country: KR (occurrence: KR)
  Receive Date: 20220223
  Receipt Date: 20220302
  Transmission Date: 20220423
  Serious: Yes (Hospitalization)
  Sender: FDA-Public Use
  Company Number: KR-LUPIN PHARMACEUTICALS INC.-2022-02199

PATIENT
  Age: 24 Year
  Sex: Female

DRUGS (12)
  1. ARIPIPRAZOLE [Suspect]
     Active Substance: ARIPIPRAZOLE
     Indication: Schizophreniform disorder
     Dosage: 10 MILLIGRAM, QD
     Route: 065
  2. ARIPIPRAZOLE [Suspect]
     Active Substance: ARIPIPRAZOLE
     Dosage: 30 MILLIGRAM, QD (DOSE WAS INCREASED TO 30 MG/DAY OVER 9 DAYS DURING 1ST ADMISSION.)
     Route: 065
  3. QUETIAPINE FUMARATE [Suspect]
     Active Substance: QUETIAPINE FUMARATE
     Indication: Insomnia
     Dosage: UNK (100-200 MG/DAY ALONG WITH ARIPIPRAZOLE DURING 1ST ADMISSION)
     Route: 065
  4. QUETIAPINE FUMARATE [Suspect]
     Active Substance: QUETIAPINE FUMARATE
     Indication: Schizophreniform disorder
     Dosage: 200 MILLIGRAM, QD (WHEN THE TREATMENT WITH ARIPIPRAZOLE WAS DISCONTINUED, ALONG WITH AMISULPRIDE SHE
     Route: 065
  5. QUETIAPINE FUMARATE [Suspect]
     Active Substance: QUETIAPINE FUMARATE
     Indication: Psychotic symptom
     Dosage: UNK (DURING 2ND VISIT SHE RECEIVED QUETIAPINE 100-200 MG/DAY AND BENZTROPINE 1 MG/DAY ALONG WITH AMI
     Route: 065
  6. QUETIAPINE FUMARATE [Suspect]
     Active Substance: QUETIAPINE FUMARATE
     Dosage: 100 MILLIGRAM, QD (GIVEN ALONG WITH AMISULPRIDE 800MG/DAY)
     Route: 065
  7. AMISULPRIDE [Concomitant]
     Active Substance: AMISULPRIDE
     Indication: Schizophreniform disorder
     Dosage: 100 MILLIGRAM, QD
     Route: 065
  8. AMISULPRIDE [Concomitant]
     Active Substance: AMISULPRIDE
     Dosage: 1000 MILLIGRAM, QD
     Route: 065
  9. AMISULPRIDE [Concomitant]
     Active Substance: AMISULPRIDE
     Dosage: 1200 MILLIGRAM, QD (DURING 2ND VISIT AMISULPRIDE WAS INCREASED TO 1200 MG/DAY, WHICH WAS MAINTAINED
     Route: 065
  10. AMISULPRIDE [Concomitant]
     Active Substance: AMISULPRIDE
     Dosage: 800 MILLIGRAM, QD
     Route: 065
  11. BENZTROPINE [Concomitant]
     Active Substance: BENZTROPINE
     Indication: Schizophreniform disorder
     Dosage: 1 MILLIGRAM, QD (ALONG WITH AMISULPRIDE AND QUETIAPINE)
     Route: 065
  12. BENZTROPINE [Concomitant]
     Active Substance: BENZTROPINE
     Dosage: 1 MILLIGRAM, QD (DURING 2ND VISIT SHE RECEIVED BENZTROPINE ALONG WITH AMISULPRIDE AND QUETIAPINE)
     Route: 065

REACTIONS (2)
  - Drug ineffective for unapproved indication [Unknown]
  - Off label use [Unknown]
